FAERS Safety Report 6746734-5 (Version None)
Quarter: 2010Q2

REPORT INFORMATION
  Report Type: 
  Country: None (occurrence: None)
  Receive Date: 20100528
  Receipt Date: 20090617
  Transmission Date: 20101027
  Serious: No
  Sender: FDA-Public Use
  Company Number: A0792041A

PATIENT
  Age: 68 Year
  Sex: Female

DRUGS (1)
  1. VENTOLIN [Suspect]
     Indication: ASTHMA
     Dosage: 1SPR AS REQUIRED
     Route: 055
     Dates: start: 20081201

REACTIONS (3)
  - DYSPHONIA [None]
  - OROPHARYNGEAL PAIN [None]
  - PHARYNGEAL ULCERATION [None]
